FAERS Safety Report 9579933 (Version 1)
Quarter: 2013Q3

REPORT INFORMATION
  Report Type: Spontaneous
  Country: US (occurrence: None)
  Receive Date: 20130916
  Receipt Date: 20130916
  Transmission Date: 20140515
  Serious: Yes (Other)
  Sender: FDA-Public Use
  Company Number: JPI-P-025690

PATIENT
  Age: 70 Year
  Sex: Male
  Weight: 68.95 kg

DRUGS (5)
  1. XYREM (500 MILLIGRAM/MILLILITERS, SOLUTION) (SODIUM OXYBATE) [Suspect]
     Indication: NARCOLEPSY
     Route: 048
     Dates: start: 20120929, end: 201210
  2. XYREM (500 MILLIGRAM/MILLILITERS, SOLUTION) (SODIUM OXYBATE) [Suspect]
     Indication: SOMNOLENCE
     Route: 048
     Dates: start: 20120929, end: 201210
  3. FLUOXETINE HYDROCHLORIDE [Concomitant]
  4. LEVOTHYROXINE SODIUM [Concomitant]
  5. ESOMEPRAZOLE SODIUM [Concomitant]

REACTIONS (17)
  - Suicidal ideation [None]
  - Depression [None]
  - Condition aggravated [None]
  - Agitation [None]
  - Performance status decreased [None]
  - Clumsiness [None]
  - Confusional state [None]
  - Nocturia [None]
  - Gait disturbance [None]
  - Musculoskeletal stiffness [None]
  - Restlessness [None]
  - Feeling cold [None]
  - Cold sweat [None]
  - Dizziness [None]
  - Nausea [None]
  - Headache [None]
  - Fatigue [None]
